FAERS Safety Report 5135546-4 (Version None)
Quarter: 2006Q4

REPORT INFORMATION
  Report Type: 
  Country: None (occurrence: None)
  Receive Date: 20061026
  Receipt Date: 20061006
  Transmission Date: 20070319
  Serious: Yes (Other)
  Sender: FDA-Public Use
  Company Number: JP-ELI_LILLY_AND_COMPANY-JP200610001963

PATIENT
  Age: 80 Year
  Sex: Male

DRUGS (2)
  1. GEMZAR [Suspect]
     Indication: PANCREATIC CARCINOMA
     Dosage: 1000 MG/M2, OTHER
     Route: 042
     Dates: start: 20060712
  2. GEMZAR [Suspect]
     Dosage: 500 MG, OTHER
     Route: 042
     Dates: start: 20060920, end: 20060920

REACTIONS (2)
  - PLATELET COUNT INCREASED [None]
  - WEIGHT DECREASED [None]
